FAERS Safety Report 7141294-1 (Version None)
Quarter: 2010Q4

REPORT INFORMATION
  Report Type: 
  Country: None (occurrence: None)
  Receive Date: 20101122
  Receipt Date: 20101108
  Transmission Date: 20110411
  Serious: Yes (Hospitalization)
  Sender: FDA-Public Use
  Company Number: DSA_44356_2010

PATIENT
  Age: 68 Year
  Sex: Male

DRUGS (16)
  1. ENALAPRIL MALEATE [Suspect]
     Indication: PRODUCT USED FOR UNKNOWN INDICATION
     Dosage: (DF ORAL)
     Route: 048
     Dates: end: 20100717
  2. NORMORIX (NORMORIX-AMILORIDE HYDROCHLORIDE-HCTZ) 9NOT SPECIFIED) [Suspect]
     Indication: PRODUCT USED FOR UNKNOWN INDICATION
     Dosage: (DF ORAL)
     Route: 048
     Dates: end: 20100717
  3. CITODON /00116401/ [Concomitant]
  4. ACETYLCYSTEINE [Concomitant]
  5. AMLODIPINE BESYLATE [Concomitant]
  6. TROMBYL [Concomitant]
  7. MOLLIPECT [Concomitant]
  8. PULMICORT [Concomitant]
  9. ZYBAN [Concomitant]
  10. PERSANTIN [Concomitant]
  11. ATROVENT [Concomitant]
  12. SIMVASTATIN [Concomitant]
  13. BRICANYL [Concomitant]
  14. SPIRIVA [Concomitant]
  15. DETRUSITOL [Concomitant]
  16. ZOLPIDEM TARTRATE [Concomitant]

REACTIONS (2)
  - HYPERKALAEMIA [None]
  - RESPIRATORY DISTRESS [None]
